FAERS Safety Report 19535499 (Version 1)
Quarter: 2021Q3

REPORT INFORMATION
  Report Type: Spontaneous
  Country: US (occurrence: US)
  Receive Date: 20210713
  Receipt Date: 20210713
  Transmission Date: 20211014
  Serious: Yes (Other)
  Sender: FDA-Public Use
  Company Number: None

PATIENT
  Age: 77 Year
  Sex: Male
  Weight: 74.25 kg

DRUGS (11)
  1. ASPIRIN 81MG [Concomitant]
     Active Substance: ASPIRIN
  2. TUMERIC [Concomitant]
     Active Substance: HERBALS\TURMERIC
  3. PROPANALOL 10MG [Concomitant]
  4. METHYLATED B COMPLEX [Concomitant]
  5. PASSION FLOWER [Concomitant]
     Active Substance: HERBALS\HOMEOPATHICS\PASSIFLORA INCARNATA FLOWER
  6. ELIQUIS [Concomitant]
     Active Substance: APIXABAN
  7. PRADAXA [Suspect]
     Active Substance: DABIGATRAN ETEXILATE MESYLATE
     Indication: ANTICOAGULANT THERAPY
     Dates: start: 20210706, end: 20210711
  8. FINASTERIDE 5MG [Concomitant]
     Active Substance: FINASTERIDE
  9. ROSUVASTATIN 2.5MG [Concomitant]
  10. VITAMIN D3 [Concomitant]
     Active Substance: CHOLECALCIFEROL
  11. C0Q10 [Concomitant]

REACTIONS (2)
  - Angioedema [None]
  - Swollen tongue [None]

NARRATIVE: CASE EVENT DATE: 20210710
